FAERS Safety Report 7402943-3 (Version None)
Quarter: 2011Q1

REPORT INFORMATION
  Report Type: 
  Country: None (occurrence: None)
  Receive Date: 20110331
  Receipt Date: 20110316
  Transmission Date: 20110831
  Serious: Yes (Death)
  Sender: FDA-Public Use
  Company Number: 2011S1000108

PATIENT
  Age: 1 Day

DRUGS (1)
  1. INOMAX [Suspect]
     Dosage: CONT;INH
     Route: 055
     Dates: start: 20101201, end: 20101201

REACTIONS (1)
  - DEATH [None]
